FAERS Safety Report 4793847-3 (Version None)
Quarter: 2005Q4

REPORT INFORMATION
  Report Type: 
  Country: None (occurrence: None)
  Receive Date: 20051006
  Receipt Date: 20051006
  Transmission Date: 20060501
  Serious: Yes (Other)
  Sender: FDA-Public Use
  Company Number: None

PATIENT
  Sex: Female
  Weight: 77.1115 kg

DRUGS (1)
  1. OXYBUTYNIN [Suspect]
     Indication: HYPERTONIC BLADDER
     Dosage: A PATCH ON MY HIP ONCE
     Dates: start: 20050201, end: 20050201

REACTIONS (3)
  - FEELING ABNORMAL [None]
  - HEADACHE [None]
  - MOBILITY DECREASED [None]
